FAERS Safety Report 4279383-1 (Version None)
Quarter: 2004Q1

REPORT INFORMATION
  Report Type: 
  Country: None (occurrence: None)
  Receive Date: 20040127
  Receipt Date: 20030814
  Transmission Date: 20041129
  Serious: Yes (Life-Threatening, Hospitalization)
  Sender: FDA-Public Use
  Company Number: WAES 0308GBR00096

PATIENT
  Age: 86 Year
  Sex: Female

DRUGS (6)
  1. ACETAMINOPHEN [Concomitant]
     Indication: BACK PAIN
     Route: 048
     Dates: end: 20030506
  2. AMITRIPTYLINE HYDROCHLORIDE [Concomitant]
     Indication: SEDATION
     Route: 048
     Dates: end: 20030506
  3. ASPIRIN [Suspect]
     Indication: TRANSIENT ISCHAEMIC ATTACK
     Route: 048
     Dates: start: 19990317, end: 20030506
  4. MORPHINE SULFATE [Concomitant]
     Route: 048
     Dates: start: 20030502, end: 20030506
  5. VIOXX [Suspect]
     Indication: BACK PAIN
     Route: 048
     Dates: start: 20030423, end: 20030502
  6. SENNA [Concomitant]
     Indication: CONSTIPATION
     Route: 048
     Dates: end: 20030506

REACTIONS (3)
  - ASTHENIA [None]
  - HAEMOGLOBIN DECREASED [None]
  - MELAENA [None]
